FAERS Safety Report 9169114 (Version 2)
Quarter: 2013Q2

REPORT INFORMATION
  Report Type: Report from Study
  Country: DE (occurrence: DE)
  Receive Date: 20130318
  Receipt Date: 20130507
  Transmission Date: 20140414
  Serious: Yes (Hospitalization, Other)
  Sender: FDA-Public Use
  Company Number: DE-BRISTOL-MYERS SQUIBB COMPANY-17454166

PATIENT
  Age: 49 Year
  Sex: Female
  Weight: 67 kg

DRUGS (4)
  1. CARBOPLATIN [Suspect]
     Indication: OVARIAN CANCER
     Dosage: DOSE:AUC 5 ?LAST DOSE:29OCT2012
     Route: 042
     Dates: start: 20120803
  2. PACLITAXEL [Suspect]
     Indication: OVARIAN CANCER
     Dosage: DOSE:309 UNITS NOS?LAST DOSE:OCT2012?SECOND EPISODE:26NOV2012
     Route: 042
     Dates: start: 20120803
  3. BEVACIZUMAB [Suspect]
     Indication: OVARIAN CANCER
     Dosage: DOSE:1050MG,930MG?LAST DOSE:29OCT2012,16JAN2013
     Route: 042
     Dates: start: 20120803
  4. ARIXTRA [Concomitant]
     Indication: THROMBOSIS
     Dosage: DOSE:27FEB2013:LAST
     Route: 058
     Dates: start: 20130201

REACTIONS (2)
  - Pyrexia [Recovered/Resolved]
  - Thrombosis [Not Recovered/Not Resolved]
